FAERS Safety Report 7486970-6 (Version None)
Quarter: 2011Q2

REPORT INFORMATION
  Report Type: 
  Country: None (occurrence: None)
  Receive Date: 20110517
  Receipt Date: 20110502
  Transmission Date: 20111010
  Serious: Yes (Disabling, Other)
  Sender: FDA-Public Use
  Company Number: CH-GENENTECH-318983

PATIENT
  Sex: Female
  Weight: 55 kg

DRUGS (2)
  1. LUCENTIS [Suspect]
     Dosage: UNK
     Route: 031
     Dates: start: 20110426
  2. LUCENTIS [Suspect]
     Indication: AGE-RELATED MACULAR DEGENERATION
     Dosage: UNK
     Route: 031
     Dates: start: 20110331

REACTIONS (3)
  - RETINAL HAEMORRHAGE [None]
  - METAMORPHOPSIA [None]
  - RETINAL PIGMENT EPITHELIAL TEAR [None]
